FAERS Safety Report 7505484-8 (Version None)
Quarter: 2011Q2

REPORT INFORMATION
  Report Type: 
  Country: None (occurrence: None)
  Receive Date: 20110526
  Receipt Date: 20110520
  Transmission Date: 20111010
  Serious: Yes (Hospitalization)
  Sender: FDA-Public Use
  Company Number: US-SANOFI-AVENTIS-2011SA025015

PATIENT
  Age: 70 Year
  Sex: Female
  Weight: 99.79 kg

DRUGS (8)
  1. MULTAQ [Suspect]
     Indication: ATRIAL FIBRILLATION
     Route: 048
     Dates: start: 20101210, end: 20110324
  2. CARDIZEM [Concomitant]
  3. DIGOXIN [Concomitant]
     Dates: start: 20050101
  4. ASPIRIN [Concomitant]
  5. LASIX [Concomitant]
  6. LEVOTHYROXINE SODIUM [Concomitant]
     Indication: HYPOTHYROIDISM
     Dates: start: 20050101
  7. VALSARTAN [Concomitant]
     Indication: HYPERTENSION
     Dates: start: 20050101
  8. PROTONIX [Concomitant]

REACTIONS (12)
  - HENOCH-SCHONLEIN PURPURA [None]
  - LUNG NEOPLASM [None]
  - ABDOMINAL DISCOMFORT [None]
  - RASH [None]
  - PNEUMONIA [None]
  - CHEST PAIN [None]
  - CHILLS [None]
  - RESPIRATORY DISTRESS [None]
  - ATRIAL FIBRILLATION [None]
  - PAIN [None]
  - HYPOXIA [None]
  - NAUSEA [None]
